FAERS Safety Report 8539269-0 (Version None)
Quarter: 2012Q3

REPORT INFORMATION
  Report Type: 
  Country: None (occurrence: None)
  Receive Date: 20120726
  Receipt Date: 20120720
  Transmission Date: 20120928
  Serious: Yes (Other)
  Sender: FDA-Public Use
  Company Number: US-PFIZER INC-2012176142

PATIENT
  Sex: Male

DRUGS (1)
  1. INLYTA [Suspect]
     Indication: NEOPLASM
     Dosage: 5 MG, 2X/DAY
     Dates: start: 20120601

REACTIONS (14)
  - NOCTURIA [None]
  - GINGIVAL PAIN [None]
  - HAEMATOCHEZIA [None]
  - GLOSSODYNIA [None]
  - GINGIVAL RECESSION [None]
  - OROPHARYNGEAL PAIN [None]
  - ENERGY INCREASED [None]
  - HAIR DISORDER [None]
  - LIMB DISCOMFORT [None]
  - THERAPEUTIC RESPONSE UNEXPECTED [None]
  - DYSPHONIA [None]
  - DIZZINESS [None]
  - TONGUE BLISTERING [None]
  - BLOOD PRESSURE INCREASED [None]
